FAERS Safety Report 6466703-2 (Version None)
Quarter: 2009Q4

REPORT INFORMATION
  Report Type: 
  Country: None (occurrence: None)
  Receive Date: 20091202
  Receipt Date: 20091118
  Transmission Date: 20100525
  Serious: Yes (Hospitalization)
  Sender: FDA-Public Use
  Company Number: JP-AMGEN-US373171

PATIENT
  Sex: Female
  Weight: 42 kg

DRUGS (4)
  1. ENBREL [Suspect]
     Indication: RHEUMATOID ARTHRITIS
     Route: 058
     Dates: start: 20090925, end: 20091016
  2. MUCOSTA [Concomitant]
     Indication: PROPHYLAXIS AGAINST GASTROINTESTINAL ULCER
     Route: 048
     Dates: start: 20090805, end: 20091019
  3. PARIET [Concomitant]
     Indication: PROPHYLAXIS AGAINST GASTROINTESTINAL ULCER
     Route: 048
     Dates: start: 20090916, end: 20091019
  4. LOXONIN [Concomitant]
     Indication: RHEUMATOID ARTHRITIS
     Route: 048
     Dates: start: 20090805, end: 20091019

REACTIONS (9)
  - BLOOD CREATINE PHOSPHOKINASE INCREASED [None]
  - CONDITION AGGRAVATED [None]
  - DERMATOMYOSITIS [None]
  - ECZEMA [None]
  - ERYTHEMA [None]
  - MUSCULAR WEAKNESS [None]
  - PAINFUL RESPIRATION [None]
  - PYREXIA [None]
  - RASH [None]
